FAERS Safety Report 5901293-1 (Version None)
Quarter: 2008Q3

REPORT INFORMATION
  Report Type: 
  Country: None (occurrence: None)
  Receive Date: 20080929
  Receipt Date: 20080828
  Transmission Date: 20090109
  Serious: No
  Sender: FDA-Public Use
  Company Number: US-BRISTOL-MYERS SQUIBB COMPANY-14318208

PATIENT
  Age: 47 Year

DRUGS (1)
  1. ORENCIA [Suspect]

REACTIONS (3)
  - ARTHRALGIA [None]
  - FAECES DISCOLOURED [None]
  - JOINT SWELLING [None]
